FAERS Safety Report 10188901 (Version 1)
Quarter: 2014Q2

REPORT INFORMATION
  Report Type: Spontaneous
  Country: US (occurrence: US)
  Receive Date: 20140522
  Receipt Date: 20140522
  Transmission Date: 20141212
  Serious: No
  Sender: FDA-Public Use
  Company Number: US-SA-2014SA028661

PATIENT
  Age: 64 Year
  Sex: Female

DRUGS (4)
  1. LANTUS SOLOSTAR [Suspect]
     Indication: DIABETES MELLITUS
     Dosage: DOSE:10 UNIT(S)
     Route: 051
     Dates: start: 20140201, end: 20140210
  2. SOLOSTAR [Concomitant]
  3. METFORMIN [Concomitant]
     Indication: DIABETES MELLITUS
     Dates: start: 2006
  4. ALL OTHER THERAPEUTIC PRODUCTS [Concomitant]
     Indication: DIABETES MELLITUS
     Dates: start: 2006

REACTIONS (2)
  - Heart rate increased [Recovered/Resolved]
  - Injection site rash [Recovered/Resolved]
